FAERS Safety Report 8354952-8 (Version None)
Quarter: 2012Q2

REPORT INFORMATION
  Report Type: 
  Country: None (occurrence: None)
  Receive Date: 20120511
  Receipt Date: 20120504
  Transmission Date: 20120825
  Serious: Yes (Hospitalization, Other)
  Sender: FDA-Public Use
  Company Number: US-TEVA-332771USA

PATIENT
  Age: 55 Year
  Sex: Female

DRUGS (1)
  1. COPAXONE [Suspect]
     Indication: MULTIPLE SCLEROSIS
     Dosage: 20 MILLIGRAM;
     Route: 058

REACTIONS (7)
  - ANAPHYLACTIC SHOCK [None]
  - SWELLING FACE [None]
  - PHARYNGEAL OEDEMA [None]
  - CHEST DISCOMFORT [None]
  - LIP SWELLING [None]
  - LOSS OF CONSCIOUSNESS [None]
  - DYSPNOEA [None]
